FAERS Safety Report 17454761 (Version 1)
Quarter: 2020Q1

REPORT INFORMATION
  Report Type: Spontaneous
  Country: PL (occurrence: PL)
  Receive Date: 20200225
  Receipt Date: 20200225
  Transmission Date: 20200409
  Serious: Yes (Other)
  Sender: FDA-Public Use
  Company Number: PL-ALVOGEN-2020-ALVOGEN-107664

PATIENT
  Age: 49 Year
  Sex: Male

DRUGS (4)
  1. METOPROLOL. [Interacting]
     Active Substance: METOPROLOL
     Indication: CARDIOVASCULAR DISORDER
  2. ASA [Concomitant]
     Active Substance: ASPIRIN
     Indication: PRODUCT USED FOR UNKNOWN INDICATION
  3. TRIMETAZIDINE [Concomitant]
     Active Substance: TRIMETAZIDINE
     Indication: PRODUCT USED FOR UNKNOWN INDICATION
  4. FLUOXETINE [Suspect]
     Active Substance: FLUOXETINE HYDROCHLORIDE
     Indication: ANTIDEPRESSANT THERAPY

REACTIONS (2)
  - Drug interaction [Unknown]
  - Bradycardia [Unknown]
